FAERS Safety Report 6511310-6 (Version None)
Quarter: 2009Q4

REPORT INFORMATION
  Report Type: 
  Country: None (occurrence: None)
  Receive Date: 20091222
  Receipt Date: 20090326
  Transmission Date: 20100525
  Serious: No
  Sender: FDA-Public Use
  Company Number: US-ASTRAZENECA-2009UW07751

PATIENT
  Age: 68 Year
  Sex: Female
  Weight: 106.1 kg

DRUGS (6)
  1. CRESTOR [Suspect]
     Indication: BLOOD CHOLESTEROL INCREASED
     Route: 048
     Dates: start: 20070101
  2. HYZAAR [Concomitant]
  3. PRECOSE [Concomitant]
  4. LORABID [Concomitant]
  5. CALTRATE [Concomitant]
  6. POTASSIUM [Concomitant]

REACTIONS (2)
  - MUSCLE SPASMS [None]
  - MYALGIA [None]
